FAERS Safety Report 10210894 (Version 1)
Quarter: 2014Q2

REPORT INFORMATION
  Report Type: Spontaneous
  Country: AU (occurrence: AU)
  Receive Date: 20140602
  Receipt Date: 20140602
  Transmission Date: 20141212
  Serious: Yes (Hospitalization, Other)
  Sender: FDA-Public Use
  Company Number: AU-AMGEN INC.-AUSSP2014039379

PATIENT
  Age: 55 Year
  Sex: Male

DRUGS (8)
  1. ARANESP [Suspect]
     Indication: ANAEMIA
     Dosage: 100 MUG, QWK
     Route: 065
  2. TACROLIMUS [Concomitant]
  3. PREDNISOLONE [Concomitant]
  4. FRUSEMIDE                          /00032601/ [Concomitant]
  5. PANTOPRAZOLE [Concomitant]
  6. NEXPRO                             /01479302/ [Concomitant]
  7. CALCITROL                          /00508501/ [Concomitant]
  8. BETALOC                            /00376902/ [Concomitant]
     Dosage: UNK

REACTIONS (2)
  - Aplasia pure red cell [Unknown]
  - Atrial fibrillation [Unknown]
